FAERS Safety Report 5222777-8 (Version None)
Quarter: 2007Q1

REPORT INFORMATION
  Report Type: 
  Country: None (occurrence: None)
  Receive Date: 20070129
  Receipt Date: 20070126
  Transmission Date: 20070707
  Serious: Yes (Other)
  Sender: FDA-Public Use
  Company Number: US-GLAXOSMITHKLINE-A0629682A

PATIENT
  Age: 66 Year
  Sex: Female

DRUGS (7)
  1. LAMICTAL [Suspect]
     Indication: BIPOLAR DISORDER
     Dosage: 100MG PER DAY
     Route: 048
     Dates: start: 20050601, end: 20061101
  2. BLOOD THINNER [Concomitant]
  3. HEART MEDICATION [Concomitant]
  4. MONOPRIL [Concomitant]
  5. COUMADIN [Concomitant]
  6. COREG [Concomitant]
  7. XANAX [Concomitant]

REACTIONS (10)
  - ATRIOVENTRICULAR BLOCK [None]
  - DIZZINESS [None]
  - DYSKINESIA [None]
  - FALL [None]
  - FEELING ABNORMAL [None]
  - GAIT DISTURBANCE [None]
  - HEADACHE [None]
  - MEMORY IMPAIRMENT [None]
  - PELVIC FRACTURE [None]
  - SALIVARY HYPERSECRETION [None]
